FAERS Safety Report 5339396-5 (Version None)
Quarter: 2007Q2

REPORT INFORMATION
  Report Type: 
  Country: None (occurrence: None)
  Receive Date: 20070322
  Receipt Date: 20061121
  Transmission Date: 20071010
  Serious: Yes (Other)
  Sender: FDA-Public Use
  Company Number: 200614035BCC

PATIENT
  Age: 36 Year
  Weight: 86.1834 kg

DRUGS (2)
  1. ALEVE (CAPLET) [Suspect]
     Indication: NECK PAIN
     Dosage: 220 MG, ONCE, ORAL
     Route: 048
     Dates: start: 20060920
  2. ALEVE (CAPLET) [Suspect]
     Indication: PAIN MANAGEMENT
     Dosage: 220 MG, ONCE, ORAL
     Route: 048
     Dates: start: 20060920

REACTIONS (13)
  - ANAPHYLACTIC REACTION [None]
  - CHILLS [None]
  - DRUG HYPERSENSITIVITY [None]
  - DYSPNOEA [None]
  - GENERALISED ERYTHEMA [None]
  - HEAT RASH [None]
  - PAINFUL RESPIRATION [None]
  - PRURITUS [None]
  - RASH [None]
  - SKIN DISCOLOURATION [None]
  - SWEAT GLAND DISORDER [None]
  - SWELLING [None]
  - SWELLING FACE [None]
